FAERS Safety Report 25190645 (Version 2)
Quarter: 2025Q2

REPORT INFORMATION
  Report Type: Report from Study
  Country: DE (occurrence: DE)
  Receive Date: 20250411
  Receipt Date: 20250613
  Transmission Date: 20250717
  Serious: Yes (Hospitalization)
  Sender: EMD SERONO INC
  Company Number: DE-Merck Healthcare KGaA-2025017301

PATIENT
  Age: 72 Year
  Sex: Female
  Weight: 66 kg

DRUGS (12)
  1. CLADRIBINE [Suspect]
     Active Substance: CLADRIBINE
     Indication: Relapsing-remitting multiple sclerosis
     Dates: start: 20190128, end: 20190201
  2. CLADRIBINE [Suspect]
     Active Substance: CLADRIBINE
     Dates: start: 20190225, end: 20190301
  3. CLADRIBINE [Suspect]
     Active Substance: CLADRIBINE
     Dates: start: 20200123, end: 20200127
  4. CLADRIBINE [Suspect]
     Active Substance: CLADRIBINE
     Dates: start: 20200220, end: 20200224
  5. CLADRIBINE [Suspect]
     Active Substance: CLADRIBINE
     Dates: start: 20230207, end: 20230211
  6. CLADRIBINE [Suspect]
     Active Substance: CLADRIBINE
     Dates: start: 20230307, end: 20230311
  7. CLADRIBINE [Suspect]
     Active Substance: CLADRIBINE
     Dates: start: 20240311, end: 20240315
  8. CLADRIBINE [Suspect]
     Active Substance: CLADRIBINE
     Dates: start: 20240408, end: 20240412
  9. ZOPICLONE [Concomitant]
     Active Substance: ZOPICLONE
     Indication: Sleep disorder
     Dates: start: 20160802
  10. FLECAINIDE [Concomitant]
     Active Substance: FLECAINIDE
     Indication: Arrhythmia
     Dates: start: 2016
  11. METOPROLOL [Concomitant]
     Active Substance: METOPROLOL
     Indication: Hypertension
     Dates: start: 2012
  12. METAMIZOLE [Concomitant]
     Active Substance: METAMIZOLE
     Indication: Headache
     Dates: start: 20120216

REACTIONS (1)
  - Concussion [Recovered/Resolved]

NARRATIVE: CASE EVENT DATE: 20250224
